FAERS Safety Report 22357096 (Version 1)
Quarter: 2023Q2

REPORT INFORMATION
  Report Type: Spontaneous
  Country: US (occurrence: US)
  Receive Date: 20230524
  Receipt Date: 20230524
  Transmission Date: 20230721
  Serious: No
  Sender: FDA-Public Use
  Company Number: US-STERISCIENCE B.V.-2022M1139115

PATIENT
  Age: 38 Year
  Sex: Female

DRUGS (4)
  1. BETAMETHASONE [Suspect]
     Active Substance: BETAMETHASONE
     Dosage: UNK
  2. CLINDAMYCIN [Suspect]
     Active Substance: CLINDAMYCIN
     Dosage: UNK, ONCE, SINGLE DOSE
  3. AMPICILLIN [Suspect]
     Active Substance: AMPICILLIN
     Dosage: UNK, ONCE,  SINGLE DOSE
  4. MAGNESIUM SULFATE [Suspect]
     Active Substance: MAGNESIUM SULFATE
     Dosage: UNK, ONCE, SINGLE DOSE

REACTIONS (1)
  - Exposure during pregnancy [None]
